FAERS Safety Report 11470988 (Version 2)
Quarter: 2015Q3

REPORT INFORMATION
  Report Type: Spontaneous
  Country: US (occurrence: US)
  Receive Date: 20150903
  Receipt Date: 20150903
  Transmission Date: 20151125
  Serious: No
  Sender: FDA-Public Use
  Company Number: US-ELI_LILLY_AND_COMPANY-US201108009196

PATIENT
  Sex: Female

DRUGS (4)
  1. CYMBALTA [Suspect]
     Active Substance: DULOXETINE HYDROCHLORIDE
     Indication: DEPRESSION
     Dosage: 30 MG, QD
     Dates: end: 20110726
  2. CYMBALTA [Suspect]
     Active Substance: DULOXETINE HYDROCHLORIDE
     Dosage: 20 MG, QD
     Dates: start: 20110726
  3. CYMBALTA [Suspect]
     Active Substance: DULOXETINE HYDROCHLORIDE
     Dosage: 20 MG, QOD
  4. CYMBALTA [Suspect]
     Active Substance: DULOXETINE HYDROCHLORIDE
     Dosage: 20 MG, QD
     Dates: start: 201108

REACTIONS (32)
  - Crying [Unknown]
  - Pruritus [Unknown]
  - Palpitations [Unknown]
  - Dry mouth [Unknown]
  - Nightmare [Unknown]
  - Anxiety [Unknown]
  - Hypophagia [Unknown]
  - Muscle twitching [Unknown]
  - Fatigue [Unknown]
  - Headache [Unknown]
  - Mania [Unknown]
  - Photophobia [Unknown]
  - Constipation [Unknown]
  - Depression [Unknown]
  - Hallucination [Unknown]
  - Nausea [Unknown]
  - Lethargy [Unknown]
  - Vomiting [Unknown]
  - Irritability [Unknown]
  - Paranoia [Unknown]
  - Panic attack [Unknown]
  - Mobility decreased [Unknown]
  - Vertigo [Unknown]
  - Drug withdrawal syndrome [Unknown]
  - Insomnia [Unknown]
  - Restlessness [Unknown]
  - Derealisation [Unknown]
  - Quality of life decreased [Unknown]
  - Dizziness [Unknown]
  - Hyperacusis [Unknown]
  - Dyspnoea [Unknown]
  - Hyperhidrosis [Unknown]
